FAERS Safety Report 18858554 (Version 1)
Quarter: 2021Q1

REPORT INFORMATION
  Report Type: Other
  Country: CA (occurrence: CA)
  Receive Date: 20210208
  Receipt Date: 20210208
  Transmission Date: 20210420
  Serious: Yes (Death, Life-Threatening, Hospitalization, Other)
  Sender: FDA-Public Use
  Company Number: CA-APOTEX-2021AP002356

PATIENT
  Age: 47 Year
  Sex: Female
  Weight: 111 kg

DRUGS (11)
  1. TRASTUZUMAB. [Suspect]
     Active Substance: TRASTUZUMAB
     Indication: BREAST CANCER METASTATIC
     Dosage: UNK
     Route: 042
  2. CYCLOPHOSPHAMIDE. [Suspect]
     Active Substance: CYCLOPHOSPHAMIDE
     Indication: BREAST CANCER
     Dosage: UNK
     Route: 042
  3. DOXORUBICIN HYDROCHLORIDE. [Suspect]
     Active Substance: DOXORUBICIN HYDROCHLORIDE
     Indication: BREAST CANCER
     Dosage: UNK
     Route: 042
  4. HYDROMORPHONE [Concomitant]
     Active Substance: HYDROMORPHONE
     Indication: PRODUCT USED FOR UNKNOWN INDICATION
     Dosage: UNK
     Route: 065
  5. KEPPRA [Concomitant]
     Active Substance: LEVETIRACETAM
     Indication: PRODUCT USED FOR UNKNOWN INDICATION
     Dosage: UNK
     Route: 065
  6. GABAPENTIN. [Concomitant]
     Active Substance: GABAPENTIN
     Indication: PRODUCT USED FOR UNKNOWN INDICATION
     Dosage: UNK
     Route: 065
  7. TAMOXIFEN [Suspect]
     Active Substance: TAMOXIFEN
     Indication: BREAST CANCER
     Dosage: UNK
     Route: 048
  8. TAXOTERE [Suspect]
     Active Substance: DOCETAXEL
     Indication: BREAST CANCER
     Dosage: UNK
     Route: 042
  9. DECADRON (DEXAMETHASONE SODIUM PHOSPHATE) [Concomitant]
     Active Substance: DEXAMETHASONE SODIUM PHOSPHATE
     Indication: PRODUCT USED FOR UNKNOWN INDICATION
     Dosage: UNK
     Route: 065
  10. KADCYLA [Suspect]
     Active Substance: ADO-TRASTUZUMAB EMTANSINE
     Indication: HER2 POSITIVE BREAST CANCER
     Dosage: 380 MILLIGRAM
     Route: 042
  11. SYNTHROID [Concomitant]
     Active Substance: LEVOTHYROXINE SODIUM
     Indication: PRODUCT USED FOR UNKNOWN INDICATION
     Dosage: UNK
     Route: 065

REACTIONS (50)
  - Mental disorder [Unknown]
  - Ventricular hypokinesia [Unknown]
  - Klebsiella infection [Unknown]
  - Paraesthesia [Unknown]
  - Death [Fatal]
  - Anorectal disorder [Unknown]
  - Blood potassium abnormal [Unknown]
  - Cerebral haematoma [Unknown]
  - Heart rate increased [Unknown]
  - Left ventricular dysfunction [Unknown]
  - Radiation necrosis [Unknown]
  - Seizure [Unknown]
  - Central nervous system infection [Unknown]
  - Decreased appetite [Unknown]
  - Cerebral haemorrhage [Unknown]
  - Malaise [Unknown]
  - Nasal dryness [Unknown]
  - Platelet count decreased [Unknown]
  - Arteriovenous malformation [Unknown]
  - Influenza like illness [Unknown]
  - Infusion related reaction [Unknown]
  - Neoplasm progression [Unknown]
  - Weight decreased [Unknown]
  - Coagulopathy [Unknown]
  - Fall [Unknown]
  - Cough [Unknown]
  - Pain [Unknown]
  - Asthenia [Unknown]
  - General physical health deterioration [Unknown]
  - Hyponatraemia [Unknown]
  - Gastric infection [Unknown]
  - Cystitis [Unknown]
  - Blood phosphorus decreased [Unknown]
  - Delirium [Unknown]
  - Left ventricular dilatation [Unknown]
  - Obesity [Unknown]
  - Performance status decreased [Unknown]
  - Brain abscess [Unknown]
  - Pneumonia [Unknown]
  - Anaemia [Unknown]
  - Depressed level of consciousness [Unknown]
  - Eastern Cooperative Oncology Group performance status worsened [Unknown]
  - Hydrocephalus [Unknown]
  - Hypotension [Unknown]
  - Muscular weakness [Unknown]
  - Clostridium difficile infection [Unknown]
  - Nasopharyngitis [Unknown]
  - Influenza [Unknown]
  - Constipation [Unknown]
  - Headache [Unknown]
